FAERS Safety Report 15524602 (Version 1)
Quarter: 2018Q4

REPORT INFORMATION
  Report Type: Spontaneous
  Country: US (occurrence: US)
  Receive Date: 20181018
  Receipt Date: 20181018
  Transmission Date: 20190205
  Serious: No
  Sender: FDA-Public Use
  Company Number: US-PFIZER INC-2018418425

PATIENT
  Age: 2 Year
  Sex: Female

DRUGS (1)
  1. GENOTROPIN [Suspect]
     Active Substance: SOMATROPIN
     Dosage: 0.5 MG, DAILY
     Dates: start: 20140926

REACTIONS (4)
  - Injection site pain [Unknown]
  - Insulin-like growth factor increased [Unknown]
  - Thyroxine free increased [Unknown]
  - Blood thyroid stimulating hormone decreased [Unknown]

NARRATIVE: CASE EVENT DATE: 20160908
